FAERS Safety Report 9333297 (Version 1)
Quarter: 2013Q2

REPORT INFORMATION
  Report Type: Spontaneous
  Country: JP (occurrence: JP)
  Receive Date: 20130606
  Receipt Date: 20130606
  Transmission Date: 20140414
  Serious: Yes (Death, Other)
  Sender: FDA-Public Use
  Company Number: PHHY2013JP056963

PATIENT
  Age: 71 Year
  Sex: Female

DRUGS (1)
  1. CICLOSPORIN [Suspect]
     Indication: BEHCET^S SYNDROME
     Route: 048

REACTIONS (2)
  - Primary effusion lymphoma [Fatal]
  - Epstein-Barr virus infection [Unknown]
